FAERS Safety Report 4863334-2 (Version None)
Quarter: 2005Q4

REPORT INFORMATION
  Report Type: 
  Country: None (occurrence: None)
  Receive Date: 20051219
  Receipt Date: 20051214
  Transmission Date: 20060501
  Serious: Yes (Hospitalization)
  Sender: FDA-Public Use
  Company Number: 2005-12-0608

PATIENT
  Age: 36 Year
  Sex: Female

DRUGS (3)
  1. BETAMETHASONE [Suspect]
     Indication: TOOTHACHE
     Dosage: ORAL
     Route: 048
     Dates: start: 20050721, end: 20050722
  2. PROPOXYPHENE HCL AND ACETAMINOPHEN [Concomitant]
  3. AUGMENTIN '125' [Concomitant]

REACTIONS (6)
  - ABSCESS [None]
  - CELLULITIS [None]
  - DRUG INEFFECTIVE [None]
  - FACE OEDEMA [None]
  - TOOTH EXTRACTION [None]
  - TOOTHACHE [None]
